FAERS Safety Report 6843932-7 (Version None)
Quarter: 2010Q3

REPORT INFORMATION
  Report Type: 
  Country: None (occurrence: None)
  Receive Date: 20100715
  Receipt Date: 20100708
  Transmission Date: 20110219
  Serious: Yes (Other)
  Sender: FDA-Public Use
  Company Number: PT-AMGEN-QUU422893

PATIENT
  Age: 31 Year
  Sex: Female
  Weight: 67 kg

DRUGS (1)
  1. NPLATE [Suspect]
     Indication: IDIOPATHIC THROMBOCYTOPENIC PURPURA
     Dates: start: 20100512, end: 20100628

REACTIONS (4)
  - OEDEMA PERIPHERAL [None]
  - PLATELET COUNT INCREASED [None]
  - RED BLOOD CELL ABNORMALITY [None]
  - SKIN LESION [None]
